FAERS Safety Report 7016402-3 (Version None)
Quarter: 2010Q3

REPORT INFORMATION
  Report Type: 
  Country: None (occurrence: None)
  Receive Date: 20100927
  Receipt Date: 20100916
  Transmission Date: 20110219
  Serious: Yes (Hospitalization, Disabling, Other)
  Sender: FDA-Public Use
  Company Number: PHHY2010US49419

PATIENT
  Sex: Male
  Weight: 78.1 kg

DRUGS (18)
  1. EXJADE [Suspect]
     Indication: MYELODYSPLASTIC SYNDROME
     Dosage: 750 MG/DAY
     Dates: start: 20090519
  2. EXJADE [Suspect]
     Dosage: 500 MG, QD
     Route: 048
     Dates: start: 20100221, end: 20100701
  3. AMIODARONE HCL [Concomitant]
     Dosage: 200 MG, QD
     Route: 048
  4. CARDURA [Concomitant]
     Dosage: 4 MG, QD
     Route: 048
  5. COLACE [Concomitant]
     Dosage: UNK
     Route: 048
  6. FOLIC ACID [Concomitant]
     Dosage: 1 MG, QD
     Route: 048
  7. FUROSEMIDE [Concomitant]
     Dosage: 40 MG, QD
     Route: 048
  8. GLYBURIDE [Concomitant]
     Dosage: 5 MG, BID
     Route: 048
  9. KLOR-CON [Concomitant]
     Dosage: 10 MG, BID
  10. LANTUS [Concomitant]
     Dosage: 100 U/ML
     Route: 048
  11. MEGACE [Concomitant]
     Dosage: UNK
     Route: 048
  12. NITROSTAT [Concomitant]
     Dosage: UNK
     Route: 048
  13. PRILOSEC [Concomitant]
     Dosage: 20 MG, BID
     Route: 048
  14. PROTONIX [Concomitant]
  15. REQUIP [Concomitant]
     Dosage: 2 MG, QD
  16. RESTORIL [Concomitant]
     Dosage: UNK
     Route: 048
  17. TENORMIN [Concomitant]
     Dosage: 50 MG, QD
  18. VICODIN [Concomitant]
     Dosage: 750 MG, PRN
     Route: 048

REACTIONS (2)
  - FALL [None]
  - HIP FRACTURE [None]
